FAERS Safety Report 4523507-5 (Version None)
Quarter: 2004Q4

REPORT INFORMATION
  Report Type: 
  Country: None (occurrence: None)
  Receive Date: 20041117
  Receipt Date: 20040728
  Transmission Date: 20050328
  Serious: Yes (Life-Threatening)
  Sender: FDA-Public Use
  Company Number: DE-JNJFOC-20040707499

PATIENT
  Age: 78 Year
  Sex: Female

DRUGS (17)
  1. LEVOFLOXACIN [Suspect]
     Indication: PNEUMONIA
     Dosage: INTRAVENOUS
     Route: 042
     Dates: start: 20030219, end: 20030225
  2. DEPAKOTE [Concomitant]
  3. SYNTHROID [Concomitant]
  4. CELEBREX [Concomitant]
  5. HYTRIN [Concomitant]
  6. MAXZIDE [Concomitant]
  7. ZYPREXA [Concomitant]
  8. LORCET-HD [Concomitant]
  9. TYLENOL [Concomitant]
  10. PRIMIDONE [Concomitant]
  11. DULCOLAX [Concomitant]
  12. MILK OF MAGNESIA (MAGNESIUM HYDROXIDE) [Concomitant]
  13. DARVOCET [Concomitant]
  14. ATACAND [Concomitant]
  15. PROVENTIL [Concomitant]
  16. ATROVENT (IPRATORPIUM BROMIDE) [Concomitant]
  17. AMOXICILLIN [Concomitant]

REACTIONS (1)
  - PNEUMOTHORAX [None]
